FAERS Safety Report 18538831 (Version 3)
Quarter: 2021Q1

REPORT INFORMATION
  Report Type: Report from Study
  Country: None (occurrence: US)
  Receive Date: 20201123
  Receipt Date: 20210112
  Transmission Date: 20210419
  Serious: Yes (Disabling, Other)
  Sender: FDA-Public Use
  Company Number: US-ABBVIE-20K-163-3657364-00

PATIENT
  Age: 15 Year
  Sex: Female

DRUGS (1)
  1. HUMIRA [Suspect]
     Active Substance: ADALIMUMAB
     Indication: JUVENILE IDIOPATHIC ARTHRITIS
     Route: 058
     Dates: start: 20201104

REACTIONS (9)
  - Mental disorder [Unknown]
  - Asthenia [Unknown]
  - Drug ineffective [Unknown]
  - Fear [Recovered/Resolved]
  - Depressed mood [Recovered/Resolved]
  - Pain [Recovering/Resolving]
  - Speech disorder [Unknown]
  - Injection site reaction [Unknown]
  - Chronic disease [Unknown]

NARRATIVE: CASE EVENT DATE: 202011
